FAERS Safety Report 6314480-8 (Version None)
Quarter: 2009Q3

REPORT INFORMATION
  Report Type: 
  Country: None (occurrence: None)
  Receive Date: 20090817
  Receipt Date: 20090817
  Transmission Date: 20100115
  Serious: Yes (Life-Threatening, Hospitalization)
  Sender: FDA-Public Use
  Company Number: None

PATIENT
  Sex: Female
  Weight: 49.8957 kg

DRUGS (1)
  1. SUMITRIPTAN SUCCINATE [Suspect]
     Indication: MIGRAINE
     Dosage: 100 MG. 1 DAILY FOR HEADAC PO
     Route: 048
     Dates: start: 20090305, end: 20090306

REACTIONS (1)
  - MYOCARDIAL INFARCTION [None]
